FAERS Safety Report 9860548 (Version 2)
Quarter: 2014Q1

REPORT INFORMATION
  Report Type: Spontaneous
  Country: US (occurrence: US)
  Receive Date: 20140202
  Receipt Date: 20140321
  Transmission Date: 20141002
  Serious: Yes (Other)
  Sender: FDA-Public Use
  Company Number: US-TEVA-459976USA

PATIENT
  Age: 25 Year
  Sex: Female
  Weight: 88.53 kg

DRUGS (6)
  1. PARAGARD 380A [Suspect]
     Indication: CONTRACEPTION
     Route: 015
     Dates: start: 20131230, end: 20140121
  2. PARAGARD 380A [Suspect]
     Route: 015
     Dates: start: 20140121
  3. CARBAMAZEPINE [Concomitant]
     Indication: CONVULSION
  4. KLONOPIN [Concomitant]
     Indication: CONVULSION
  5. VYVANSE [Concomitant]
     Indication: MUSCLE INJURY
  6. PROTRIPTYLINE [Concomitant]
     Indication: MOOD SWINGS

REACTIONS (2)
  - Device dislocation [Recovered/Resolved]
  - Medical device complication [Recovered/Resolved]
